FAERS Safety Report 4277028-8 (Version None)
Quarter: 2004Q1

REPORT INFORMATION
  Report Type: 
  Country: None (occurrence: None)
  Receive Date: 20040120
  Receipt Date: 20040105
  Transmission Date: 20041129
  Serious: Yes (Hospitalization)
  Sender: FDA-Public Use
  Company Number: 6006782

PATIENT
  Age: 44 Year
  Sex: Female

DRUGS (7)
  1. LEVOTHYROX 100 (TABLETS) (LEVOTHYROXINE SODIUM) [Suspect]
     Dosage: 100 MCG (100 MCG, 1 IN 1 D) ORAL
     Route: 048
  2. LEXOMIL (TABLETS) (BROMAZEPAM) [Suspect]
     Dosage: 500 DOSAGE ORAL
     Route: 048
     Dates: start: 20020601
  3. STILNOX (TABLETS) (ZOLPIDEM) [Suspect]
     Dosage: 1 DOSAGE FORMS (1 IN 1 D) ORAL
     Route: 048
     Dates: start: 20021001, end: 20030522
  4. AREDIA [Suspect]
     Dosage: 90 MG, 1 IN 1 M) INTRAVENOUS DRIP
     Route: 041
     Dates: start: 20030218, end: 20030522
  5. MOPRAL (CAPSULES) (OMEPRAZOLE) [Suspect]
     Dosage: 20,000 MG (20 MG, 1 IN 1 D) ORAL
     Route: 048
     Dates: start: 20020601, end: 20030522
  6. SPORANOX [Suspect]
     Dosage: 400 MG, ORAL
     Route: 048
     Dates: start: 20020801, end: 20030815
  7. EFFERALGAN (TABLETS) (PARACETAMOL) [Suspect]
     Dosage: ORAL
     Route: 048
     Dates: start: 20030522

REACTIONS (2)
  - CONJUNCTIVAL HAEMORRHAGE [None]
  - THROMBOCYTOPENIA [None]
